FAERS Safety Report 4720808-2 (Version None)
Quarter: 2005Q3

REPORT INFORMATION
  Report Type: 
  Country: None (occurrence: None)
  Receive Date: 20050719
  Receipt Date: 20050705
  Transmission Date: 20060218
  Serious: Yes (Hospitalization, Disabling)
  Sender: FDA-Public Use
  Company Number: 2005100087

PATIENT
  Age: 53 Year
  Sex: Male
  Weight: 109 kg

DRUGS (14)
  1. CELEBREX [Suspect]
     Indication: ILL-DEFINED DISORDER
     Dosage: 200 MG (200 MG, 1 IN 1 D), ORAL
     Route: 048
     Dates: start: 20020107, end: 20040526
  2. METFORMIN HCL [Concomitant]
  3. HYDROCODONE BITARTRATE + ACETAMINOPHEN [Concomitant]
  4. LIPITOR [Concomitant]
  5. DIAZEPAM [Concomitant]
  6. TRAMADOL HCL [Concomitant]
  7. HUMULIN N [Concomitant]
  8. ADVAIR (FLUTICASONE PROPIONATE, SALMETEROL XINAFOATE) [Concomitant]
  9. COMBIVENT [Concomitant]
  10. FLUOXETINE [Concomitant]
  11. AVANDAMET (METFORMIN HYDROCHLORIDE, ROSIGLITAZONE) [Concomitant]
  12. ACETYLSALICYLIC ACID SRT [Concomitant]
  13. TOPROL-XL [Concomitant]
  14. VALSARTAN [Concomitant]

REACTIONS (5)
  - ATRIOVENTRICULAR BLOCK FIRST DEGREE [None]
  - BLOOD GLUCOSE INCREASED [None]
  - DILATATION ATRIAL [None]
  - FATIGUE [None]
  - MYOCARDIAL INFARCTION [None]
